FAERS Safety Report 15249126 (Version 1)
Quarter: 2018Q3

REPORT INFORMATION
  Report Type: Report from Study
  Country: CA (occurrence: CA)
  Receive Date: 20180807
  Receipt Date: 20180807
  Transmission Date: 20181010
  Serious: Yes (Other)
  Sender: FDA-Public Use
  Company Number: CA-JNJFOC-20180708382

PATIENT
  Sex: Female
  Weight: 72 kg

DRUGS (2)
  1. REMICADE [Suspect]
     Active Substance: INFLIXIMAB
     Indication: CROHN^S DISEASE
     Route: 042
     Dates: start: 20080128
  2. REMICADE [Suspect]
     Active Substance: INFLIXIMAB
     Indication: CROHN^S DISEASE
     Dosage: STRENGTH = 100 MG, RECEIVED 111TH INFUSION 400 MG ONCE EVERY 4 WEEKS ON 05?JUL?2018
     Route: 042
     Dates: start: 20080324

REACTIONS (2)
  - Crohn^s disease [Not Recovered/Not Resolved]
  - Basal cell carcinoma [Recovered/Resolved]
